FAERS Safety Report 8419428-8 (Version None)
Quarter: 2012Q2

REPORT INFORMATION
  Report Type: 
  Country: None (occurrence: None)
  Receive Date: 20120607
  Receipt Date: 20120530
  Transmission Date: 20120825
  Serious: Yes (Congenital Anomaly)
  Sender: FDA-Public Use
  Company Number: US-GLAXOSMITHKLINE-A0980373A

PATIENT
  Sex: Female

DRUGS (2)
  1. XANAX [Concomitant]
  2. PAXIL CR [Suspect]
     Indication: PRODUCT USED FOR UNKNOWN INDICATION
     Dosage: 25MG PER DAY
     Route: 064
     Dates: start: 20020530

REACTIONS (5)
  - CONVULSION [None]
  - CEREBROVASCULAR ACCIDENT [None]
  - CARDIAC MURMUR [None]
  - HEART DISEASE CONGENITAL [None]
  - FOETAL EXPOSURE DURING PREGNANCY [None]
